FAERS Safety Report 26088123 (Version 2)
Quarter: 2025Q4

REPORT INFORMATION
  Report Type: Spontaneous
  Country: CN (occurrence: CN)
  Receive Date: 20251125
  Receipt Date: 20251203
  Transmission Date: 20260118
  Serious: Yes (Other)
  Sender: NOVARTIS
  Company Number: CN-002147023-NVSC2025CN179890

PATIENT
  Age: 18 Year
  Sex: Male
  Weight: 51 kg

DRUGS (2)
  1. CYCLOSPORINE [Suspect]
     Active Substance: CYCLOSPORINE
     Indication: T-cell type acute leukaemia
     Dosage: 50 MG, BID
     Route: 048
     Dates: start: 20251028, end: 20251104
  2. URSODIOL [Concomitant]
     Active Substance: URSODIOL
     Indication: Prophylaxis
     Dosage: UNK
     Route: 065

REACTIONS (8)
  - Liver transplant rejection [Unknown]
  - Intestine transplant rejection [Unknown]
  - Liver injury [Recovering/Resolving]
  - Hepatic function abnormal [Recovering/Resolving]
  - Diarrhoea [Recovering/Resolving]
  - Abdominal pain [Recovering/Resolving]
  - Jaundice [Unknown]
  - Drug level decreased [Unknown]

NARRATIVE: CASE EVENT DATE: 20251104
